FAERS Safety Report 10915716 (Version 1)
Quarter: 2015Q1

REPORT INFORMATION
  Report Type: Spontaneous
  Country: DE (occurrence: DE)
  Receive Date: 20150316
  Receipt Date: 20150316
  Transmission Date: 20150721
  Serious: Yes (Hospitalization)
  Sender: FDA-Public Use
  Company Number: DE-ABBVIE-15K-062-1359173-00

PATIENT
  Sex: Male

DRUGS (4)
  1. SULFASALAZINE. [Concomitant]
     Active Substance: SULFASALAZINE
     Indication: PRODUCT USED FOR UNKNOWN INDICATION
  2. METHOTREXATE [Concomitant]
     Active Substance: METHOTREXATE
     Indication: PRODUCT USED FOR UNKNOWN INDICATION
  3. HUMIRA [Suspect]
     Active Substance: ADALIMUMAB
     Indication: CEREBRAL PALSY
     Route: 058
     Dates: start: 20141211, end: 201501
  4. HUMIRA [Suspect]
     Active Substance: ADALIMUMAB
     Indication: LUNG DISORDER

REACTIONS (3)
  - Renal failure [Unknown]
  - Lung infiltration [Unknown]
  - Lupus-like syndrome [Recovering/Resolving]
